FAERS Safety Report 5478175-5 (Version None)
Quarter: 2007Q4

REPORT INFORMATION
  Report Type: 
  Country: None (occurrence: None)
  Receive Date: 20071005
  Receipt Date: 20070301
  Transmission Date: 20080405
  Serious: No
  Sender: FDA-Public Use
  Company Number: US-BRISTOL-MYERS SQUIBB COMPANY-13697495

PATIENT
  Age: 63 Year
  Sex: Female
  Weight: 84 kg

DRUGS (7)
  1. AVAPRO [Suspect]
     Indication: HYPERTENSION
     Dosage: PATIENT TAKES 150MG. AT HS.
  2. LITHIUM [Concomitant]
  3. ZOLOFT [Concomitant]
  4. IMODIUM [Concomitant]
  5. ENABLEX [Concomitant]
  6. SYNTHROID [Concomitant]
  7. VITAMINS [Concomitant]

REACTIONS (4)
  - ASTHENIA [None]
  - BLOOD PRESSURE INCREASED [None]
  - HEADACHE [None]
  - NEUROPATHY PERIPHERAL [None]
